FAERS Safety Report 13555405 (Version 1)
Quarter: 2017Q2

REPORT INFORMATION
  Report Type: Other
  Country: None (occurrence: EC)
  Receive Date: 20170517
  Receipt Date: 20170517
  Transmission Date: 20170830
  Serious: Yes (Other)
  Sender: FDA-Public Use
  Company Number: EC-POPULATION COUNCIL, INC.-2020887

PATIENT
  Sex: Female

DRUGS (1)
  1. JADELLE [Suspect]
     Active Substance: LEVONORGESTREL
     Indication: CONTRACEPTION
     Route: 059
     Dates: start: 2013

REACTIONS (4)
  - Device deposit issue [Not Recovered/Not Resolved]
  - Abortion spontaneous [None]
  - Drug ineffective [None]
  - Pregnancy with implant contraceptive [None]
